FAERS Safety Report 5893454-5 (Version None)
Quarter: 2008Q3

REPORT INFORMATION
  Report Type: 
  Country: None (occurrence: None)
  Receive Date: 20080922
  Receipt Date: 20080922
  Transmission Date: 20090109
  Serious: Yes (Other)
  Sender: FDA-Public Use
  Company Number: None

PATIENT
  Age: 63 Year
  Sex: Female
  Weight: 50 kg

DRUGS (7)
  1. CCI-779 (TEMSIROLIMUS) [Suspect]
     Indication: MULTIPLE MYELOMA
     Dosage: 25MG WEEKLY FOR 5 WKS
     Dates: start: 20080711, end: 20080912
  2. VELCADE [Suspect]
     Indication: MULTIPLE MYELOMA
     Dosage: 1.6MG/M2 WEEKLY FOR 4
     Dates: start: 20080711, end: 20080905
  3. NEURONTIN [Concomitant]
  4. SIMVASTATIN [Concomitant]
  5. TOPROL-XL [Concomitant]
  6. VALTREX [Concomitant]
  7. ZOFRAN [Concomitant]

REACTIONS (1)
  - DYSPHAGIA [None]
